FAERS Safety Report 8128573-6 (Version None)
Quarter: 2012Q1

REPORT INFORMATION
  Report Type: 
  Country: None (occurrence: None)
  Receive Date: 20120210
  Receipt Date: 20111207
  Transmission Date: 20120608
  Serious: No
  Sender: FDA-Public Use
  Company Number: US-BRISTOL-MYERS SQUIBB COMPANY-16276271

PATIENT
  Age: 51 Year
  Sex: Female
  Weight: 118 kg

DRUGS (3)
  1. PREDNISONE TAB [Concomitant]
  2. METHOTREXATE [Concomitant]
  3. ORENCIA [Suspect]
     Dosage: NO OF INF: 4.
     Route: 042
     Dates: start: 20111001

REACTIONS (1)
  - DRUG INEFFECTIVE [None]
